FAERS Safety Report 18337079 (Version 1)
Quarter: 2020Q4

REPORT INFORMATION
  Report Type: Report from Study
  Country: None (occurrence: US)
  Receive Date: 20201001
  Receipt Date: 20201001
  Transmission Date: 20210113
  Serious: Yes (Hospitalization, Other)
  Sender: FDA-Public Use
  Company Number: US-ABBVIE-20K-163-3407046-00

PATIENT
  Age: 71 Year
  Sex: Male
  Weight: 92.16 kg

DRUGS (9)
  1. HUMIRA [Suspect]
     Active Substance: ADALIMUMAB
     Indication: CROHN^S DISEASE
     Route: 058
     Dates: start: 201412, end: 2016
  2. ATORVASTATIN [Concomitant]
     Active Substance: ATORVASTATIN
     Indication: THROMBOSIS
  3. AMLODIPINE [Concomitant]
     Active Substance: AMLODIPINE BESYLATE
     Indication: HYPERTENSION
  4. HUMIRA [Suspect]
     Active Substance: ADALIMUMAB
     Route: 058
     Dates: start: 2016, end: 201904
  5. LASIX [Suspect]
     Active Substance: FUROSEMIDE
     Indication: DIURETIC THERAPY
     Route: 065
     Dates: end: 2020
  6. HUMIRA [Suspect]
     Active Substance: ADALIMUMAB
     Route: 058
     Dates: start: 2020, end: 20200612
  7. ELIQUIS [Concomitant]
     Active Substance: APIXABAN
     Indication: THROMBOSIS
  8. METOPROLOL. [Concomitant]
     Active Substance: METOPROLOL
     Indication: HYPERTENSION
  9. LOSARTAN. [Concomitant]
     Active Substance: LOSARTAN
     Indication: HYPERTENSION

REACTIONS (21)
  - Basal cell carcinoma [Recovered/Resolved]
  - Pneumonia [Recovered/Resolved]
  - Weight increased [Recovered/Resolved]
  - Diarrhoea [Recovering/Resolving]
  - Aneurysm [Recovering/Resolving]
  - Blood potassium decreased [Recovering/Resolving]
  - Large intestinal ulcer [Not Recovered/Not Resolved]
  - Blood magnesium decreased [Recovering/Resolving]
  - Herpes zoster [Recovered/Resolved]
  - Fluid retention [Recovered/Resolved]
  - Vomiting [Recovering/Resolving]
  - Cardiac failure congestive [Recovering/Resolving]
  - Squamous cell carcinoma of skin [Recovered/Resolved]
  - Crohn^s disease [Unknown]
  - Drug ineffective [Not Recovered/Not Resolved]
  - Syncope [Recovered/Resolved]
  - Blood creatinine abnormal [Recovering/Resolving]
  - Malaise [Recovering/Resolving]
  - Blood pressure decreased [Unknown]
  - Anaemia [Recovering/Resolving]
  - Microangiopathy [Not Recovered/Not Resolved]

NARRATIVE: CASE EVENT DATE: 2018
